FAERS Safety Report 8130791 (Version 6)
Quarter: 2012Q4

REPORT INFORMATION
  Report Type: 
  Country: US (occurrence: US)
  Receive Date: 20110912
  Receipt Date: 20121025
  Transmission Date: 20130627
  Serious: Yes (Hospitalization, Other)
  Sender: FDA-Public Use
  Company Number: US-BAYER-2011-081820

PATIENT
  Age: 37 Year
  Sex: Female
  Weight: 105.22 kg

DRUGS (6)
  1. YASMIN [Suspect]
     Indication: PREMENSTRUAL SYNDROME
     Dosage: UNK
     Route: 048
     Dates: start: 2005, end: 2007
  2. YASMIN [Suspect]
     Indication: PREMENSTRUAL DYSPHORIC DISORDER
     Dosage: UNK
     Route: 048
     Dates: start: 20090227, end: 20090527
  3. NSAID^S [Concomitant]
     Dosage: UNK
     Dates: start: 2007
  4. RELPAX [Concomitant]
     Indication: MIGRAINE
     Dosage: UNK
  5. CYMBALTA [Concomitant]
     Indication: DEPRESSION
     Dosage: UNK
  6. OTHER ANALGESICS AND ANTIPYRETICS [Concomitant]

REACTIONS (7)
  - Gallbladder injury [None]
  - Cholecystitis chronic [None]
  - Bipolar I disorder [Not Recovered/Not Resolved]
  - Injury [None]
  - Pain [None]
  - Post-traumatic stress disorder [Not Recovered/Not Resolved]
  - Anxiety [Not Recovered/Not Resolved]
